FAERS Safety Report 7401098-9 (Version None)
Quarter: 2011Q2

REPORT INFORMATION
  Report Type: 
  Country: None (occurrence: None)
  Receive Date: 20110407
  Receipt Date: 20110330
  Transmission Date: 20111010
  Serious: Yes (Death)
  Sender: FDA-Public Use
  Company Number: US-BAXTER-2011BH005824

PATIENT
  Age: 64 Year
  Sex: Male

DRUGS (4)
  1. DIANEAL [Suspect]
     Route: 033
     Dates: start: 20091201, end: 20110101
  2. DIANEAL [Suspect]
     Route: 033
     Dates: start: 20091201, end: 20110101
  3. DIANEAL [Suspect]
     Indication: PERITONEAL DIALYSIS
     Route: 033
     Dates: start: 20110201, end: 20110309
  4. DIANEAL [Suspect]
     Indication: PERITONEAL DIALYSIS
     Route: 033
     Dates: start: 20110201, end: 20110309

REACTIONS (9)
  - PERITONEAL DIALYSIS COMPLICATION [None]
  - CONVULSION [None]
  - HEAD INJURY [None]
  - CONFUSIONAL STATE [None]
  - VOMITING [None]
  - ARTERIOSCLEROSIS [None]
  - FALL [None]
  - EXCORIATION [None]
  - SYNCOPE [None]
